FAERS Safety Report 15595974 (Version 1)
Quarter: 2018Q4

REPORT INFORMATION
  Report Type: Report from Study
  Country: None (occurrence: RO)
  Receive Date: 20181107
  Receipt Date: 20181107
  Transmission Date: 20190205
  Serious: Yes (Other)
  Sender: FDA-Public Use
  Company Number: RO-ABBVIE-18K-135-2543275-00

PATIENT
  Sex: Female

DRUGS (14)
  1. HUMIRA [Suspect]
     Active Substance: ADALIMUMAB
     Indication: PSORIASIS
     Route: 058
     Dates: start: 201605, end: 201805
  2. MSM 70 [Concomitant]
     Indication: PRODUCT USED FOR UNKNOWN INDICATION
     Route: 048
  3. PERSEDON [Concomitant]
     Indication: PRODUCT USED FOR UNKNOWN INDICATION
     Route: 048
  4. MILURIT [Concomitant]
     Active Substance: ALLOPURINOL
     Indication: PRODUCT USED FOR UNKNOWN INDICATION
     Route: 048
  5. ESENTIN FORTE [Concomitant]
     Indication: PRODUCT USED FOR UNKNOWN INDICATION
     Route: 048
  6. LEFLUNOMID [Concomitant]
     Active Substance: LEFLUNOMIDE
     Indication: PRODUCT USED FOR UNKNOWN INDICATION
     Route: 048
  7. BRUFEN [Concomitant]
     Active Substance: IBUPROFEN
     Indication: PRODUCT USED FOR UNKNOWN INDICATION
     Route: 048
  8. ATACAND [Concomitant]
     Active Substance: CANDESARTAN CILEXETIL
     Indication: HYPERTENSION
     Route: 048
  9. TENAXUM [Concomitant]
     Active Substance: RILMENIDINE
     Indication: HYPERTENSION
     Route: 048
  10. CELADRIN FORTE [Concomitant]
     Indication: PRODUCT USED FOR UNKNOWN INDICATION
     Route: 048
  11. VITAMIN E [Concomitant]
     Active Substance: .ALPHA.-TOCOPHEROL
     Indication: PRODUCT USED FOR UNKNOWN INDICATION
     Route: 048
  12. NORVASC [Concomitant]
     Active Substance: AMLODIPINE BESYLATE
     Indication: HYPERTENSION
     Route: 048
  13. TERTENSIF [Concomitant]
     Active Substance: INDAPAMIDE
     Indication: HYPERTENSION
     Route: 048
  14. MAGNOSUN [Concomitant]
     Indication: PRODUCT USED FOR UNKNOWN INDICATION
     Route: 048

REACTIONS (4)
  - Arthralgia [Not Recovered/Not Resolved]
  - Nodule [Not Recovered/Not Resolved]
  - Liver disorder [Recovering/Resolving]
  - Antibody test abnormal [Recovering/Resolving]

NARRATIVE: CASE EVENT DATE: 2017
